FAERS Safety Report 9767780 (Version 1)
Quarter: 2013Q4

REPORT INFORMATION
  Report Type: Spontaneous
  Country: US (occurrence: None)
  Receive Date: 20131213
  Receipt Date: 20131213
  Transmission Date: 20140711
  Serious: Yes (Hospitalization, Other)
  Sender: FDA-Public Use
  Company Number: 2013US002868

PATIENT
  Age: 68 Year
  Sex: Female

DRUGS (2)
  1. ICLUSIG [Suspect]
     Indication: ACUTE LYMPHOCYTIC LEUKAEMIA
     Route: 048
     Dates: start: 20130320, end: 20131022
  2. ICLUSIG [Suspect]
     Indication: CHRONIC MYELOID LEUKAEMIA
     Route: 048
     Dates: start: 20130320, end: 20131022

REACTIONS (5)
  - Pulmonary arterial hypertension [None]
  - Mitral valve incompetence [None]
  - Neoplasm progression [None]
  - Neuropathy peripheral [None]
  - Chest pain [None]
